FAERS Safety Report 22594145 (Version 1)
Quarter: 2023Q2

REPORT INFORMATION
  Report Type: Spontaneous
  Country: US (occurrence: None)
  Receive Date: 20230612
  Receipt Date: 20230612
  Transmission Date: 20230721
  Serious: Yes (Hospitalization)
  Sender: FDA-Public Use
  Company Number: None

PATIENT
  Age: 68 Year
  Sex: Female

DRUGS (16)
  1. AMBRISENTAN [Suspect]
     Active Substance: AMBRISENTAN
     Indication: Pulmonary arterial hypertension
     Dosage: FREQUENCY : DAILY;?
     Route: 048
     Dates: start: 20160421
  2. SILDENAFIL [Concomitant]
     Active Substance: SILDENAFIL
  3. SUCRALFATE [Concomitant]
     Active Substance: SUCRALFATE
  4. OXYCODONE [Concomitant]
     Active Substance: OXYCODONE
  5. CELLCEPT [Concomitant]
     Active Substance: MYCOPHENOLATE MOFETIL
  6. NORTRIPTYLINE [Concomitant]
     Active Substance: NORTRIPTYLINE
  7. LEVOTHYROXINE [Concomitant]
     Active Substance: LEVOTHYROXINE
  8. PANTOPRAZOLE [Concomitant]
     Active Substance: PANTOPRAZOLE
  9. OXYGEN INTRANASAL [Concomitant]
  10. MELATONIN [Concomitant]
     Active Substance: MELATONIN
  11. BENZONTATE [Concomitant]
  12. ALBUTERNOL HFA [Concomitant]
  13. FUROSEMIDE [Concomitant]
     Active Substance: FUROSEMIDE
  14. BENZONATATE [Concomitant]
     Active Substance: BENZONATATE
  15. FERROUS SULFATE [Concomitant]
     Active Substance: FERROUS SULFATE
  16. MUPIROCIN TOP OINT [Concomitant]

REACTIONS (7)
  - Hypotension [None]
  - Drug intolerance [None]
  - Dyspnoea [None]
  - Presyncope [None]
  - Dizziness [None]
  - Palpitations [None]
  - Chest pain [None]

NARRATIVE: CASE EVENT DATE: 20230531
